FAERS Safety Report 6912532-2 (Version None)
Quarter: 2010Q3

REPORT INFORMATION
  Report Type: 
  Country: None (occurrence: None)
  Receive Date: 20100806
  Receipt Date: 20080707
  Transmission Date: 20110219
  Serious: No
  Sender: FDA-Public Use
  Company Number: US-PFIZER INC-2008056686

PATIENT
  Sex: Male

DRUGS (3)
  1. GLUCOTROL XL [Suspect]
     Indication: TYPE 2 DIABETES MELLITUS
  2. METOPROLOL [Interacting]
     Dates: start: 20080101
  3. DEMADEX [Interacting]
     Dates: start: 20080101

REACTIONS (4)
  - ANAEMIA [None]
  - DIZZINESS [None]
  - DRUG INTERACTION [None]
  - WEIGHT DECREASED [None]
